FAERS Safety Report 23945870 (Version 1)
Quarter: 2024Q2

REPORT INFORMATION
  Report Type: Spontaneous
  Country: CN (occurrence: CN)
  Receive Date: 20240606
  Receipt Date: 20240606
  Transmission Date: 20240716
  Serious: Yes (Hospitalization)
  Sender: FDA-Public Use
  Company Number: CN-PFIZER INC-PV202400072825

PATIENT
  Age: 53 Year
  Sex: Male
  Weight: 62 kg

DRUGS (5)
  1. CYTARABINE [Suspect]
     Active Substance: CYTARABINE
     Indication: Oesophageal carcinoma
     Dosage: 175 MG, 1X/DAY
     Route: 041
     Dates: start: 20240322, end: 20240326
  2. DECITABINE [Suspect]
     Active Substance: DECITABINE
     Indication: Oesophageal carcinoma
     Dosage: 24 MG, 1X/DAY
     Route: 041
     Dates: start: 20240322, end: 20240324
  3. IDARUBICIN HYDROCHLORIDE [Suspect]
     Active Substance: IDARUBICIN HYDROCHLORIDE
     Indication: Oesophageal carcinoma
     Dosage: 10 MG, 1X/DAY
     Route: 041
     Dates: start: 20240322, end: 20240322
  4. IDARUBICIN HYDROCHLORIDE [Suspect]
     Active Substance: IDARUBICIN HYDROCHLORIDE
     Dosage: 20 MG, 1X/DAY
     Route: 041
     Dates: start: 20240323, end: 20240323
  5. IDARUBICIN HYDROCHLORIDE [Suspect]
     Active Substance: IDARUBICIN HYDROCHLORIDE
     Dosage: 10 MG, 1X/DAY
     Route: 041
     Dates: start: 20240324, end: 20240324

REACTIONS (4)
  - Hepatic function abnormal [Unknown]
  - Chest discomfort [Unknown]
  - Asthenia [Unknown]
  - Off label use [Unknown]

NARRATIVE: CASE EVENT DATE: 20240101
